FAERS Safety Report 14715516 (Version 1)
Quarter: 2018Q1

REPORT INFORMATION
  Report Type: Spontaneous
  Country: US (occurrence: US)
  Receive Date: 20180330
  Receipt Date: 20180330
  Transmission Date: 20180509
  Serious: No
  Sender: FDA-Public Use
  Company Number: None

PATIENT
  Sex: Male

DRUGS (1)
  1. HUMIRA [Suspect]
     Active Substance: ADALIMUMAB
     Indication: RHEUMATOID ARTHRITIS
     Route: 058
     Dates: start: 20170330

REACTIONS (7)
  - Vision blurred [None]
  - Photophobia [None]
  - Thyroid disorder [None]
  - Headache [None]
  - Heart rate increased [None]
  - Dry eye [None]
  - Visual impairment [None]
